FAERS Safety Report 5192549-1 (Version None)
Quarter: 2006Q4

REPORT INFORMATION
  Report Type: 
  Country: None (occurrence: None)
  Receive Date: 20061220
  Receipt Date: 20061208
  Transmission Date: 20070319
  Serious: Yes (Other)
  Sender: FDA-Public Use
  Company Number: BR-GDP-0613626

PATIENT
  Age: 42 Year
  Sex: Female

DRUGS (2)
  1. TRI-LUMA [Suspect]
     Indication: CHLOASMA
     Dates: start: 20060823, end: 20060907
  2. SUN BATH PROTECTIVE TANNING LOTION [Concomitant]

REACTIONS (3)
  - SELF ESTEEM DECREASED [None]
  - SELF-MEDICATION [None]
  - SKIN DISCOLOURATION [None]
